FAERS Safety Report 8794329 (Version 1)
Quarter: 2012Q4

REPORT INFORMATION
  Report Type: 
  Country: US (occurrence: US)
  Receive Date: 20120917
  Receipt Date: 20120917
  Transmission Date: 20130627
  Serious: Yes (Other)
  Sender: FDA-Public Use
  Company Number: US-MERCK-1209USA005710

PATIENT

DRUGS (1)
  1. SAPHRIS [Suspect]
     Dosage: 5 mg, UNK
     Route: 060

REACTIONS (11)
  - Unresponsive to stimuli [Unknown]
  - Musculoskeletal stiffness [Unknown]
  - Eye movement disorder [Unknown]
  - Blood pressure increased [Unknown]
  - Heart rate increased [Unknown]
  - Tachycardia [Unknown]
  - Hyperhidrosis [Unknown]
  - Dysarthria [Unknown]
  - Swelling face [Unknown]
  - Hypertension [Unknown]
  - Swollen tongue [Unknown]
